FAERS Safety Report 10353570 (Version 1)
Quarter: 2014Q3

REPORT INFORMATION
  Report Type: Report from Study
  Country: US (occurrence: US)
  Receive Date: 20140731
  Receipt Date: 20140731
  Transmission Date: 20150326
  Serious: Yes (Other)
  Sender: FDA-Public Use
  Company Number: US-ROCHE-1443064

PATIENT
  Sex: Male

DRUGS (3)
  1. DEXAMETHASONE. [Suspect]
     Active Substance: DEXAMETHASONE
     Indication: THROMBOCYTOPENIA
     Dosage: 4-DAY CYCLES AT 2- WEEK INTERVALS, USUALLY INTRAVENOUSLY (IV) ON DAYS 1 AND 15
     Route: 042
  2. DEXAMETHASONE. [Suspect]
     Active Substance: DEXAMETHASONE
     Dosage: BY ORAL ADMINISTRATION THE OTHER TEN DAYS.
     Route: 048
  3. RITUXIMAB [Suspect]
     Active Substance: RITUXIMAB
     Indication: THROMBOCYTOPENIA
     Route: 042

REACTIONS (2)
  - Acute disseminated encephalomyelitis [Recovered/Resolved]
  - Hypogammaglobulinaemia [Unknown]
